FAERS Safety Report 10837902 (Version 1)
Quarter: 2015Q1

REPORT INFORMATION
  Report Type: Report from Study
  Country: US (occurrence: US)
  Receive Date: 20150219
  Receipt Date: 20150219
  Transmission Date: 20150721
  Serious: Yes (Hospitalization)
  Sender: FDA-Public Use
  Company Number: US-ABBVIE-14P-163-1231473-00

PATIENT
  Age: 62 Year
  Sex: Male

DRUGS (13)
  1. METHYLPREDNISOLONE. [Concomitant]
     Active Substance: METHYLPREDNISOLONE
     Indication: ANKYLOSING SPONDYLITIS
  2. FLECAINIDE [Concomitant]
     Active Substance: FLECAINIDE
     Indication: ATRIAL FIBRILLATION
  3. LOZARTAN [Concomitant]
     Indication: HYPERTENSION
  4. HYDROCODONE [Concomitant]
     Active Substance: HYDROCODONE
     Indication: ANKYLOSING SPONDYLITIS
     Dosage: 3 OR 4 TIMES A DAY
  5. CRESTOR [Concomitant]
     Active Substance: ROSUVASTATIN CALCIUM
     Indication: CARDIAC DISORDER
  6. FLOMAX [Concomitant]
     Active Substance: TAMSULOSIN HYDROCHLORIDE
     Indication: PROSTATIC DISORDER
  7. HUMIRA [Suspect]
     Active Substance: ADALIMUMAB
     Indication: ANKYLOSING SPONDYLITIS
  8. FLECAINIDE [Concomitant]
     Active Substance: FLECAINIDE
  9. DELZICOL [Concomitant]
     Active Substance: MESALAMINE
     Indication: INFLAMMATORY BOWEL DISEASE
  10. ASA [Concomitant]
     Active Substance: ASPIRIN
     Indication: PROPHYLAXIS
  11. HYDROCODONE [Concomitant]
     Active Substance: HYDROCODONE
     Indication: PAIN
  12. COZAAR [Concomitant]
     Active Substance: LOSARTAN POTASSIUM
     Indication: PRODUCT USED FOR UNKNOWN INDICATION
  13. ALENDRONATE [Concomitant]
     Active Substance: ALENDRONATE SODIUM
     Indication: OSTEOARTHRITIS

REACTIONS (3)
  - Adrenal insufficiency [Unknown]
  - Joint swelling [Unknown]
  - Spinal fracture [Recovered/Resolved]

NARRATIVE: CASE EVENT DATE: 201301
